FAERS Safety Report 19595628 (Version 1)
Quarter: 2021Q3

REPORT INFORMATION
  Report Type: Spontaneous
  Country: JP (occurrence: JP)
  Receive Date: 20210722
  Receipt Date: 20210722
  Transmission Date: 20211014
  Serious: Yes (Other)
  Sender: FDA-Public Use
  Company Number: JP-TEVA-2021-JP-1933566

PATIENT
  Age: 1 Year
  Sex: Female

DRUGS (5)
  1. VINCRISTINE [Concomitant]
     Active Substance: VINCRISTINE
     Indication: RHABDOID TUMOUR OF THE KIDNEY
     Route: 065
  2. DOXORUBICIN [Concomitant]
     Active Substance: DOXORUBICIN
     Indication: RHABDOID TUMOUR OF THE KIDNEY
     Route: 065
  3. GEMCITABINE. [Suspect]
     Active Substance: GEMCITABINE
     Indication: RHABDOID TUMOUR OF THE KIDNEY
     Dosage: 900 MG/M2 DAILY; ON DAY 1 AND 8
     Route: 065
  4. DOCETAXEL. [Suspect]
     Active Substance: DOCETAXEL
     Indication: RHABDOID TUMOUR OF THE KIDNEY
     Dosage: 100 MG/M2 DAILY; ON DAY 8
     Route: 065
  5. CYCLOPHOSPHAMIDE. [Concomitant]
     Active Substance: CYCLOPHOSPHAMIDE
     Indication: RHABDOID TUMOUR OF THE KIDNEY
     Route: 065

REACTIONS (1)
  - Haematotoxicity [Unknown]
